FAERS Safety Report 7105278-1 (Version None)
Quarter: 2010Q4

REPORT INFORMATION
  Report Type: 
  Country: None (occurrence: None)
  Receive Date: 20101116
  Receipt Date: 20101110
  Transmission Date: 20110411
  Serious: Yes (Other)
  Sender: FDA-Public Use
  Company Number: JP-B.I. PHARMACEUTICALS,INC./RIDGEFIELD-2010-BP-12630NB

PATIENT
  Age: 89 Year
  Sex: Male

DRUGS (3)
  1. MICARDIS [Suspect]
     Indication: HYPERTENSION
     Dosage: 20 MG
     Route: 048
     Dates: start: 20101028, end: 20101028
  2. ARICEPT [Suspect]
     Dosage: 5 MG
     Route: 048
     Dates: start: 20090313
  3. ZYLORIC [Suspect]
     Dosage: 50 MG
     Route: 048
     Dates: start: 20030101

REACTIONS (4)
  - BLOOD PRESSURE SYSTOLIC INCREASED [None]
  - HYPOTENSION [None]
  - LOSS OF CONSCIOUSNESS [None]
  - SHOCK [None]
